FAERS Safety Report 8575915-3 (Version None)
Quarter: 2012Q3

REPORT INFORMATION
  Report Type: 
  Country: None (occurrence: None)
  Receive Date: 20120807
  Receipt Date: 20120731
  Transmission Date: 20120928
  Serious: Yes (Other)
  Sender: FDA-Public Use
  Company Number: TR-US-EMD SERONO, INC.-7151762

PATIENT
  Sex: Female
  Weight: 48 kg

DRUGS (2)
  1. REBIF [Suspect]
     Indication: MULTIPLE SCLEROSIS
     Route: 058
     Dates: start: 20090101
  2. IMURAN [Suspect]
     Indication: IMMUNOSUPPRESSANT DRUG THERAPY
     Route: 048
     Dates: start: 20110901, end: 20120301

REACTIONS (4)
  - SERUM FERRITIN DECREASED [None]
  - HAEMATOCRIT DECREASED [None]
  - THALASSAEMIA [None]
  - HAEMOGLOBIN DECREASED [None]
